FAERS Safety Report 11788681 (Version 1)
Quarter: 2015Q4

REPORT INFORMATION
  Report Type: Spontaneous
  Country: US (occurrence: None)
  Receive Date: 20151130
  Receipt Date: 20151130
  Transmission Date: 20160305
  Serious: Yes (Other)
  Sender: FDA-Public Use
  Company Number: None

PATIENT
  Age: 50 Year
  Sex: Female
  Weight: 82.56 kg

DRUGS (9)
  1. SENEXON-S [Concomitant]
     Active Substance: DOCUSATE SODIUM\SENNOSIDES A AND B
  2. AFRIN GENERIC .05%SP MAJOR PHARMACEUTICAL [Suspect]
     Active Substance: OXYMETAZOLINE
     Indication: SINUS CONGESTION
     Route: 045
     Dates: start: 20151128, end: 20151128
  3. CYCLOBENZAPRINE [Concomitant]
     Active Substance: CYCLOBENZAPRINE
  4. OMEPRAZOLE. [Concomitant]
     Active Substance: OMEPRAZOLE
  5. TRAMADOL. [Concomitant]
     Active Substance: TRAMADOL
  6. LORATIDINE [Concomitant]
     Active Substance: LORATADINE
  7. BENADRYL [Concomitant]
     Active Substance: DIPHENHYDRAMINE HYDROCHLORIDE
  8. MIRALAX [Concomitant]
     Active Substance: POLYETHYLENE GLYCOL 3350
  9. AFRIN GENERIC .05%SP MAJOR PHARMACEUTICAL [Suspect]
     Active Substance: OXYMETAZOLINE
     Indication: HEADACHE
     Route: 045
     Dates: start: 20151128, end: 20151128

REACTIONS (4)
  - Vascular rupture [None]
  - Swelling face [None]
  - Vomiting [None]
  - Retching [None]

NARRATIVE: CASE EVENT DATE: 20151128
